FAERS Safety Report 25174655 (Version 1)
Quarter: 2025Q2

REPORT INFORMATION
  Report Type: Spontaneous
  Country: GB (occurrence: GB)
  Receive Date: 20250408
  Receipt Date: 20250408
  Transmission Date: 20250716
  Serious: Yes (Other)
  Sender: MYLAN
  Company Number: GB-MHRA-TPP26494115C10718429YC1743675668708

PATIENT
  Age: 46 Year
  Sex: Female
  Weight: 105 kg

DRUGS (34)
  1. AMLODIPINE [Suspect]
     Active Substance: AMLODIPINE BESYLATE
     Indication: Ill-defined disorder
  2. AMLODIPINE [Suspect]
     Active Substance: AMLODIPINE BESYLATE
     Route: 065
  3. AMLODIPINE [Suspect]
     Active Substance: AMLODIPINE BESYLATE
     Route: 065
  4. AMLODIPINE [Suspect]
     Active Substance: AMLODIPINE BESYLATE
  5. NITROFURANTOIN [Concomitant]
     Active Substance: NITROFURANTOIN
     Indication: Ill-defined disorder
     Dosage: 1 DOSAGE FORM, BID (TAKE ONE CAPSULE TWICE DAILY FOR 7 DAYS, TO TRE.)
     Dates: start: 20250113, end: 20250120
  6. NITROFURANTOIN [Concomitant]
     Active Substance: NITROFURANTOIN
     Dosage: 1 DOSAGE FORM, BID (TAKE ONE CAPSULE TWICE DAILY FOR 7 DAYS, TO TRE.)
     Route: 065
     Dates: start: 20250113, end: 20250120
  7. NITROFURANTOIN [Concomitant]
     Active Substance: NITROFURANTOIN
     Dosage: 1 DOSAGE FORM, BID (TAKE ONE CAPSULE TWICE DAILY FOR 7 DAYS, TO TRE.)
     Route: 065
     Dates: start: 20250113, end: 20250120
  8. NITROFURANTOIN [Concomitant]
     Active Substance: NITROFURANTOIN
     Dosage: 1 DOSAGE FORM, BID (TAKE ONE CAPSULE TWICE DAILY FOR 7 DAYS, TO TRE.)
     Dates: start: 20250113, end: 20250120
  9. AMDINOCILLIN PIVOXIL [Concomitant]
     Active Substance: AMDINOCILLIN PIVOXIL
     Indication: Ill-defined disorder
     Dates: start: 20250319, end: 20250322
  10. AMDINOCILLIN PIVOXIL [Concomitant]
     Active Substance: AMDINOCILLIN PIVOXIL
     Route: 065
     Dates: start: 20250319, end: 20250322
  11. AMDINOCILLIN PIVOXIL [Concomitant]
     Active Substance: AMDINOCILLIN PIVOXIL
     Route: 065
     Dates: start: 20250319, end: 20250322
  12. AMDINOCILLIN PIVOXIL [Concomitant]
     Active Substance: AMDINOCILLIN PIVOXIL
     Dates: start: 20250319, end: 20250322
  13. AMITRIPTYLINE HYDROCHLORIDE [Concomitant]
     Active Substance: AMITRIPTYLINE HYDROCHLORIDE
     Indication: Ill-defined disorder
     Dosage: UNK UNK, PM (TAKE 1 OR 2 AT NIGHT AS REQUIRED)
     Dates: start: 20240620
  14. AMITRIPTYLINE HYDROCHLORIDE [Concomitant]
     Active Substance: AMITRIPTYLINE HYDROCHLORIDE
     Dosage: UNK UNK, PM (TAKE 1 OR 2 AT NIGHT AS REQUIRED)
     Route: 065
     Dates: start: 20240620
  15. AMITRIPTYLINE HYDROCHLORIDE [Concomitant]
     Active Substance: AMITRIPTYLINE HYDROCHLORIDE
     Dosage: UNK UNK, PM (TAKE 1 OR 2 AT NIGHT AS REQUIRED)
     Route: 065
     Dates: start: 20240620
  16. AMITRIPTYLINE HYDROCHLORIDE [Concomitant]
     Active Substance: AMITRIPTYLINE HYDROCHLORIDE
     Dosage: UNK UNK, PM (TAKE 1 OR 2 AT NIGHT AS REQUIRED)
     Dates: start: 20240620
  17. METHENAMINE HIPPURATE [Concomitant]
     Active Substance: METHENAMINE HIPPURATE
     Indication: Ill-defined disorder
     Dosage: 1 UNK, BID (TAKE ONE TABLET TWICE A DAY. FOR PROPHYLAXIS AN...)
     Dates: start: 20240620
  18. METHENAMINE HIPPURATE [Concomitant]
     Active Substance: METHENAMINE HIPPURATE
     Indication: Prophylaxis
     Dosage: 1 UNK, BID (TAKE ONE TABLET TWICE A DAY. FOR PROPHYLAXIS AN...)
     Dates: start: 20240620
  19. PREGABALIN [Concomitant]
     Active Substance: PREGABALIN
     Indication: Ill-defined disorder
     Dosage: 1 DOSAGE FORM, BID (TAKE ONE TWICE DAILY)
     Dates: start: 20240620
  20. PREGABALIN [Concomitant]
     Active Substance: PREGABALIN
     Dosage: 1 DOSAGE FORM, BID (TAKE ONE TWICE DAILY)
     Route: 065
     Dates: start: 20240620
  21. PREGABALIN [Concomitant]
     Active Substance: PREGABALIN
     Dosage: 1 DOSAGE FORM, BID (TAKE ONE TWICE DAILY)
     Route: 065
     Dates: start: 20240620
  22. PREGABALIN [Concomitant]
     Active Substance: PREGABALIN
     Dosage: 1 DOSAGE FORM, BID (TAKE ONE TWICE DAILY)
     Dates: start: 20240620
  23. PROCHLORPERAZINE [Concomitant]
     Active Substance: PROCHLORPERAZINE
     Indication: Ill-defined disorder
     Dosage: 1 DOSAGE FORM, TID (TAKE 1 TO BE TAKEN UP TO THREE TIMES DAILY FOR)
     Dates: start: 20240620
  24. PROCHLORPERAZINE [Concomitant]
     Active Substance: PROCHLORPERAZINE
     Dosage: 1 DOSAGE FORM, TID (TAKE 1 TO BE TAKEN UP TO THREE TIMES DAILY FOR)
     Route: 065
     Dates: start: 20240620
  25. PROCHLORPERAZINE [Concomitant]
     Active Substance: PROCHLORPERAZINE
     Dosage: 1 DOSAGE FORM, TID (TAKE 1 TO BE TAKEN UP TO THREE TIMES DAILY FOR)
     Route: 065
     Dates: start: 20240620
  26. PROCHLORPERAZINE [Concomitant]
     Active Substance: PROCHLORPERAZINE
     Dosage: 1 DOSAGE FORM, TID (TAKE 1 TO BE TAKEN UP TO THREE TIMES DAILY FOR)
     Dates: start: 20240620
  27. SERTRALINE [Concomitant]
     Active Substance: SERTRALINE HYDROCHLORIDE
     Indication: Ill-defined disorder
     Dosage: 1 DOSAGE FORM, QD (TAKE ONE DAILY)
     Dates: start: 20240903
  28. SERTRALINE [Concomitant]
     Active Substance: SERTRALINE HYDROCHLORIDE
     Dosage: 1 DOSAGE FORM, QD (TAKE ONE DAILY)
     Route: 065
     Dates: start: 20240903
  29. SERTRALINE [Concomitant]
     Active Substance: SERTRALINE HYDROCHLORIDE
     Dosage: 1 DOSAGE FORM, QD (TAKE ONE DAILY)
     Route: 065
     Dates: start: 20240903
  30. SERTRALINE [Concomitant]
     Active Substance: SERTRALINE HYDROCHLORIDE
     Dosage: 1 DOSAGE FORM, QD (TAKE ONE DAILY)
     Dates: start: 20240903
  31. AMLODIPINE [Concomitant]
     Active Substance: AMLODIPINE BESYLATE
     Indication: Ill-defined disorder
     Dosage: 1 DOSAGE FORM, AM (ONE TABLET TO BE TAKEN ONCE A DAY IN THE MORNIN.)
     Dates: start: 20250228, end: 20250403
  32. AMLODIPINE [Concomitant]
     Active Substance: AMLODIPINE BESYLATE
     Dosage: 1 DOSAGE FORM, AM (ONE TABLET TO BE TAKEN ONCE A DAY IN THE MORNIN.)
     Route: 065
     Dates: start: 20250228, end: 20250403
  33. AMLODIPINE [Concomitant]
     Active Substance: AMLODIPINE BESYLATE
     Dosage: 1 DOSAGE FORM, AM (ONE TABLET TO BE TAKEN ONCE A DAY IN THE MORNIN.)
     Route: 065
     Dates: start: 20250228, end: 20250403
  34. AMLODIPINE [Concomitant]
     Active Substance: AMLODIPINE BESYLATE
     Dosage: 1 DOSAGE FORM, AM (ONE TABLET TO BE TAKEN ONCE A DAY IN THE MORNIN.)
     Dates: start: 20250228, end: 20250403

REACTIONS (2)
  - Rash [Not Recovered/Not Resolved]
  - Headache [Not Recovered/Not Resolved]

NARRATIVE: CASE EVENT DATE: 20250403
